FAERS Safety Report 9148608 (Version 2)
Quarter: 2013Q2

REPORT INFORMATION
  Report Type: Spontaneous
  Country: IE (occurrence: IE)
  Receive Date: 20130308
  Receipt Date: 20130514
  Transmission Date: 20140414
  Serious: Yes (Death, Hospitalization, Other)
  Sender: FDA-Public Use
  Company Number: IE-JNJFOC-20130217114

PATIENT
  Age: 67 Year
  Sex: Male

DRUGS (1)
  1. XARELTO [Suspect]
     Indication: CEREBROVASCULAR ACCIDENT PROPHYLAXIS
     Route: 048

REACTIONS (6)
  - Death [Fatal]
  - Cerebrovascular accident [Unknown]
  - Haemorrhage [Unknown]
  - Hip fracture [Unknown]
  - Post procedural haemorrhage [Unknown]
  - Osteomyelitis [Unknown]
